FAERS Safety Report 4503843-9 (Version None)
Quarter: 2004Q4

REPORT INFORMATION
  Report Type: 
  Country: None (occurrence: None)
  Receive Date: 20041115
  Receipt Date: 20041102
  Transmission Date: 20050328
  Serious: Yes (Hospitalization)
  Sender: FDA-Public Use
  Company Number: 2004050419

PATIENT
  Age: 68 Year
  Sex: Male

DRUGS (1)
  1. NIFEDIPINE [Suspect]
     Indication: HYPERTENSION
     Dosage: (10 MG), SUBLINGUAL
     Route: 060

REACTIONS (5)
  - CEREBRAL INFARCTION [None]
  - HEART RATE INCREASED [None]
  - RESPIRATORY RATE INCREASED [None]
  - THERAPEUTIC RESPONSE DECREASED [None]
  - VISION BLURRED [None]
